FAERS Safety Report 9917121 (Version 1)
Quarter: 2014Q1

REPORT INFORMATION
  Report Type: Spontaneous
  Country: FR (occurrence: FR)
  Receive Date: 20140221
  Receipt Date: 20140221
  Transmission Date: 20141002
  Serious: Yes (Other)
  Sender: FDA-Public Use
  Company Number: FR-JNJFOC-20140208087

PATIENT
  Age: 50 Year
  Sex: Female

DRUGS (4)
  1. YONDELIS [Suspect]
     Indication: OVARIAN CANCER
     Dosage: CYCLE 2
     Route: 050
     Dates: start: 20131217
  2. YONDELIS [Suspect]
     Indication: OVARIAN CANCER
     Dosage: CYCLE 1
     Route: 050
     Dates: start: 20131008
  3. YONDELIS [Suspect]
     Indication: OVARIAN CANCER
     Dosage: CYCLE 3
     Route: 050
     Dates: start: 20140107, end: 20140211
  4. DOXORUBICIN HCL [Suspect]
     Indication: PRODUCT USED FOR UNKNOWN INDICATION
     Route: 065

REACTIONS (5)
  - Asthenia [Unknown]
  - Vomiting [Unknown]
  - Gamma-glutamyltransferase increased [Unknown]
  - Aspartate aminotransferase increased [Unknown]
  - Alanine aminotransferase increased [Unknown]
